FAERS Safety Report 5469288-2 (Version None)
Quarter: 2007Q3

REPORT INFORMATION
  Report Type: 
  Country: None (occurrence: None)
  Receive Date: 20070927
  Receipt Date: 20070924
  Transmission Date: 20080115
  Serious: Yes (Other)
  Sender: FDA-Public Use
  Company Number: DE-NOVOPROD-266478

PATIENT
  Sex: Male
  Weight: 87 kg

DRUGS (11)
  1. LEVEMIR [Suspect]
     Indication: DRUG USE FOR UNKNOWN INDICATION
     Dosage: 60 IE, QD
     Route: 058
  2. LEVEMIR [Suspect]
     Dosage: 20 IU, UNK
     Route: 058
  3. NOVORAPID [Concomitant]
     Dosage: 5 IU/CARBOHYDRATE UNIT
     Dates: start: 20000101
  4. NOVORAPID [Concomitant]
     Dosage: 1-2 IU/CARBOHYDRATE UNIT
  5. ASPIRIN [Concomitant]
     Dosage: 100 MG, QD
  6. ALLOPURINOL [Concomitant]
     Dosage: 300 MG, QD
  7. NIASPAN [Concomitant]
     Dosage: 1 G, QD
  8. EZETROL [Concomitant]
     Dosage: 1 DF, QD
  9. FUROSEMID                          /00032601/ [Concomitant]
     Dosage: 80 MG, UNK
  10. MICARDIS [Concomitant]
     Dosage: 80 MG, QD
  11. JANUVIA [Concomitant]
     Dosage: 1 UNK, QD
     Route: 048
     Dates: start: 20070601

REACTIONS (2)
  - FACE OEDEMA [None]
  - OEDEMA [None]
